FAERS Safety Report 5859669-7 (Version None)
Quarter: 2008Q3

REPORT INFORMATION
  Report Type: 
  Country: None (occurrence: None)
  Receive Date: 20080827
  Receipt Date: 20080822
  Transmission Date: 20090109
  Serious: Yes (Hospitalization)
  Sender: FDA-Public Use
  Company Number: US-WATSON-2008-05110

PATIENT
  Sex: Female

DRUGS (2)
  1. FENTANYL-75 (WATSON LABORATORIES) [Suspect]
     Indication: CANCER PAIN
     Dosage: 75 MCG, Q 48 HRS
     Route: 062
     Dates: start: 20080801
  2. OTHER ANTIHYPERTENSIVES [Concomitant]
     Indication: BLOOD PRESSURE
     Dosage: UNK
     Route: 065

REACTIONS (6)
  - DIPLOPIA [None]
  - DIZZINESS [None]
  - DYSARTHRIA [None]
  - HYPERHIDROSIS [None]
  - MENTAL IMPAIRMENT [None]
  - VISUAL IMPAIRMENT [None]
